FAERS Safety Report 19776193 (Version 19)
Quarter: 2022Q2

REPORT INFORMATION
  Report Type: Report from Study
  Country: GB (occurrence: GB)
  Receive Date: 20210901
  Receipt Date: 20220622
  Transmission Date: 20220720
  Serious: Yes (Death, Life-Threatening, Hospitalization, Other)
  Sender: FDA-Public Use
  Company Number: None

PATIENT
  Age: 71 Year
  Sex: Female
  Weight: 51.2 kg

DRUGS (119)
  1. CARBOPLATIN [Suspect]
     Active Substance: CARBOPLATIN
     Indication: Non-small cell lung cancer
     Dosage: 450 MILLIGRAM, QD/29-JUL-2020
  2. CARBOPLATIN [Suspect]
     Active Substance: CARBOPLATIN
     Indication: Small cell lung cancer extensive stage
     Dosage: 450 MILLIGRAM, QD (450 MG, ONCE PER DAY)/29-JUL-2020
  3. CARBOPLATIN [Suspect]
     Active Substance: CARBOPLATIN
     Dosage: 450 MILLIGRAM QD (ENDOTRACHEOPULMONARY INSTILLATION)29-JUL-2020
  4. CLOPIDOGREL [Suspect]
     Active Substance: CLOPIDOGREL BISULFATE
     Indication: Hypertension
     Dosage: UNK, QD
  5. CLOPIDOGREL [Suspect]
     Active Substance: CLOPIDOGREL BISULFATE
     Dosage: UNK, ONCE PER DAY/27-AUG-2020
  6. CLOPIDOGREL [Suspect]
     Active Substance: CLOPIDOGREL BISULFATE
     Dosage: 1 DOSAGE FORM, QD
  7. CODEINE PHOSPHATE [Suspect]
     Active Substance: CODEINE PHOSPHATE
     Indication: Pain
     Dosage: UNK, QD (1.5 DAILY)
  8. CODEINE PHOSPHATE [Suspect]
     Active Substance: CODEINE PHOSPHATE
     Dosage: UNK, 2 TIMES PER DAY
  9. ZOLMITRIPTAN [Suspect]
     Active Substance: ZOLMITRIPTAN
     Indication: Pain
     Dosage: UNK, ONCE PER DAY
  10. AMLODIPINE [Suspect]
     Active Substance: AMLODIPINE BESYLATE
     Indication: Hypertension
     Dosage: UNK, QD,ONCE A DAY
  11. AMLODIPINE [Suspect]
     Active Substance: AMLODIPINE BESYLATE
     Dosage: UNK, QD,ONCE PER DAY
  12. AMLODIPINE [Suspect]
     Active Substance: AMLODIPINE BESYLATE
     Dosage: UNK UNK, QD, ONCE PER DAY
  13. AMLODIPINE [Suspect]
     Active Substance: AMLODIPINE BESYLATE
     Dosage: UNK UNK, QD
  14. AMLODIPINE [Suspect]
     Active Substance: AMLODIPINE BESYLATE
     Dosage: 1 MILLIGRAM, QD, ONCE PER DAY
  15. AMOXICILLIN [Suspect]
     Active Substance: AMOXICILLIN
     Indication: Product used for unknown indication
     Dosage: UNK, Q6H/10-AUG-2020
     Dates: end: 20200816
  16. AMOXICILLIN [Suspect]
     Active Substance: AMOXICILLIN
     Dosage: 1 DOSAGE FORM, QD/10-AUG-2020
     Dates: end: 20200816
  17. AMOXICILLIN [Suspect]
     Active Substance: AMOXICILLIN
     Dosage: UNK, QID/10-AUG-2020
     Dates: end: 20200816
  18. AMOXICILLIN [Suspect]
     Active Substance: AMOXICILLIN
     Dosage: 10-AUG-2020
     Dates: end: 20200816
  19. AMOXICILLIN [Suspect]
     Active Substance: AMOXICILLIN
     Dosage: UNK, 4 TIMES PER DAY/10-AUG-2020
     Dates: end: 20200816
  20. CIPROFLOXACIN [Suspect]
     Active Substance: CIPROFLOXACIN
     Indication: Prophylaxis
     Dosage: UNK, BID/27-AUG-2020
  21. CIPROFLOXACIN [Suspect]
     Active Substance: CIPROFLOXACIN
     Dosage: 2 DOSAGE FORM, QD/27-AUG-2020
  22. CIPROFLOXACIN [Suspect]
     Active Substance: CIPROFLOXACIN
     Dosage: UNK, QD/27-AUG-2020
  23. CIPROFLOXACIN [Suspect]
     Active Substance: CIPROFLOXACIN
     Dosage: UNK, 2 TIMES PER DAY/27-AUG-2020
  24. ETOPOSIDE [Suspect]
     Active Substance: ETOPOSIDE
     Indication: Non-small cell lung cancer
     Dosage: 148 MILLIGRAM, QD/29-JUL-2020
  25. ETOPOSIDE [Suspect]
     Active Substance: ETOPOSIDE
     Indication: Small cell lung cancer extensive stage
     Dosage: 600 MILLIGRAM, QD/30-JUL-2020
     Route: 048
  26. ETOPOSIDE [Suspect]
     Active Substance: ETOPOSIDE
     Dosage: 148 MILLIGRAM,148 MG, ONCE PER DAY/29-JUL-2020
  27. ETOPOSIDE [Suspect]
     Active Substance: ETOPOSIDE
     Dosage: 600 MILLIGRAM, QD (600 MG, ONCE PER DAY)
     Route: 048
  28. ETOPOSIDE [Suspect]
     Active Substance: ETOPOSIDE
     Indication: Small cell lung cancer extensive stage
     Dosage: 148 MILLIGRAM/29-JUL-2020
     Route: 042
  29. FLUCONAZOLE [Suspect]
     Active Substance: FLUCONAZOLE
     Indication: Candida infection
     Dosage: UNK, QD
  30. FLUCONAZOLE [Suspect]
     Active Substance: FLUCONAZOLE
     Dosage: UNK, QD  (ONCE PER DAY)
  31. FORMOTEROL [Suspect]
     Active Substance: FORMOTEROL
     Indication: Hypertension
     Dosage: 1 MILLIGRAM, BID/01-MAR-2020
  32. FORMOTEROL [Suspect]
     Active Substance: FORMOTEROL
     Dosage: 0.5 MILLIGRAM, QD/01-MAR-2020
  33. FORMOTEROL [Suspect]
     Active Substance: FORMOTEROL
     Dosage: 0.5 MILLIGRAM, BID/01-MAR-2020
  34. FORMOTEROL [Suspect]
     Active Substance: FORMOTEROL
     Dosage: UNK, UNK (QD)/01-MAR-2020
  35. LACTULOSE [Suspect]
     Active Substance: LACTULOSE
     Indication: Prophylaxis
     Dosage: UNK, BID
  36. LACTULOSE [Suspect]
     Active Substance: LACTULOSE
     Dosage: UNK, ONCE PER DAY (QD)
  37. LACTULOSE [Suspect]
     Active Substance: LACTULOSE
     Dosage: UNK, ONCE PER DAY (QD)
  38. LACTULOSE [Suspect]
     Active Substance: LACTULOSE
     Dosage: UNK, 2 TIMES PER DAY
  39. LACTULOSE [Suspect]
     Active Substance: LACTULOSE
     Dosage: UNK, 2 TIMES PER DAY (Q12H)
  40. LACTULOSE [Suspect]
     Active Substance: LACTULOSE
     Dosage: 1 DOSAGE FORM, QD
  41. LACTULOSE [Suspect]
     Active Substance: LACTULOSE
     Dosage: 0.5, QD 2 TIMES PER DAY
  42. LACTULOSE [Suspect]
     Active Substance: LACTULOSE
     Dosage: UNK, ONCE PER DAY (QD)
  43. LACTULOSE [Suspect]
     Active Substance: LACTULOSE
     Dosage: UNK, ONCE PER DAY (QD)
  44. LANSOPRAZOLE [Suspect]
     Active Substance: LANSOPRAZOLE
     Indication: Prophylaxis
     Dosage: 1 MILLIGRAM, QD/01-JAN-2017
  45. LANSOPRAZOLE [Suspect]
     Active Substance: LANSOPRAZOLE
     Dosage: UNK, ONCE PER DAY/01-JAN-2017
  46. LANSOPRAZOLE [Suspect]
     Active Substance: LANSOPRAZOLE
     Dosage: UNK, QD  01-JAN-2017
  47. LINEZOLID [Suspect]
     Active Substance: LINEZOLID
     Indication: Neutropenic sepsis
     Dosage: UNK (30-AUG-2020)
  48. LINEZOLID [Suspect]
     Active Substance: LINEZOLID
     Dosage: 30-AUG-2020
  49. ALBUTEROL [Suspect]
     Active Substance: ALBUTEROL
     Indication: Prophylaxis
     Dosage: UNK
  50. ALBUTEROL [Suspect]
     Active Substance: ALBUTEROL
     Dosage: UNK
  51. MORPHINE [Suspect]
     Active Substance: MORPHINE
     Indication: Prophylaxis
     Dosage: 25-AUG-2020
  52. MORPHINE [Suspect]
     Active Substance: MORPHINE
     Indication: Pain
     Dosage: UNK UNK, BID, TWO TIMES A DAY/31-JUL-2020
  53. MORPHINE [Suspect]
     Active Substance: MORPHINE
     Dosage: UNK, QD/27-JUL-2020
  54. MORPHINE [Suspect]
     Active Substance: MORPHINE
     Dosage: 27-JUL-2020
  55. MORPHINE [Suspect]
     Active Substance: MORPHINE
     Dosage: 1 DOSAGE FORM, QD/31-JUL-2020
  56. MORPHINE [Suspect]
     Active Substance: MORPHINE
     Dosage: 28-AUG-2020
  57. MORPHINE [Suspect]
     Active Substance: MORPHINE
     Dosage: UNK, BID/31-JUL-2020
  58. MORPHINE [Suspect]
     Active Substance: MORPHINE
     Dosage: 27-JUL-2020
  59. MORPHINE [Suspect]
     Active Substance: MORPHINE
     Dosage: 25-AUG-2020
  60. TIOTROPIUM [Suspect]
     Active Substance: TIOTROPIUM
     Indication: Chronic obstructive pulmonary disease
     Dosage: UNK UNK, QD
  61. TIOTROPIUM [Suspect]
     Active Substance: TIOTROPIUM
     Dosage: UNK
  62. VENLAFAXINE [Suspect]
     Active Substance: VENLAFAXINE HYDROCHLORIDE
     Indication: Depression
     Dosage: UNK, QD/ONCE PER DAY
  63. VENLAFAXINE [Suspect]
     Active Substance: VENLAFAXINE HYDROCHLORIDE
     Dosage: UNK, QD/20-AUG-2020
  64. VENLAFAXINE [Suspect]
     Active Substance: VENLAFAXINE HYDROCHLORIDE
     Dosage: UNK, BID/20-AUG-2020
  65. VENLAFAXINE [Suspect]
     Active Substance: VENLAFAXINE HYDROCHLORIDE
     Dosage: UNK, ONCE PER DAY
  66. VENLAFAXINE [Suspect]
     Active Substance: VENLAFAXINE HYDROCHLORIDE
     Dosage: UNK UNK, QD
  67. VENLAFAXINE [Suspect]
     Active Substance: VENLAFAXINE HYDROCHLORIDE
     Dosage: 1 MILLIGRAM, BID
  68. VENLAFAXINE [Suspect]
     Active Substance: VENLAFAXINE HYDROCHLORIDE
     Dosage: 1 DOSAGE FORM, BID/20-AUG-2020
  69. VENLAFAXINE [Suspect]
     Active Substance: VENLAFAXINE HYDROCHLORIDE
     Dosage: UNK, 0.5 QD/20-AUG-2020
  70. VENLAFAXINE [Suspect]
     Active Substance: VENLAFAXINE HYDROCHLORIDE
     Dosage: UNK, BID/20-AUG-2020
  71. VORICONAZOLE [Suspect]
     Active Substance: VORICONAZOLE
     Indication: Neutropenic sepsis
     Dosage: UNK, ONCE PER DAY/30-AUG-2020
  72. VORICONAZOLE [Suspect]
     Active Substance: VORICONAZOLE
     Dosage: 1 DOSAGE FORM, QD/30-AUG-2020
  73. VORICONAZOLE [Suspect]
     Active Substance: VORICONAZOLE
     Dosage: UNK, QD 30-AUG-2020 00:00
  74. ZOPICLONE [Suspect]
     Active Substance: ZOPICLONE
     Indication: Prophylaxis
     Dosage: 1 MILLIGRAM, QD/31-JUL-2020
  75. ZOPICLONE [Suspect]
     Active Substance: ZOPICLONE
     Dosage: UNK, ONCE PER DAY/31-JUL-2020
  76. ZOPICLONE [Suspect]
     Active Substance: ZOPICLONE
     Dosage: UNK, QD 31-JUL-2020 00:00
  77. CYCLIZINE [Suspect]
     Active Substance: CYCLIZINE
     Indication: Neutropenic sepsis
     Dosage: UNK, Q6H (1 IN 0.25 DAY)
  78. CYCLIZINE [Suspect]
     Active Substance: CYCLIZINE
     Indication: Vomiting
     Dosage: UNK, 2 TIMES PER DAY
  79. CYCLIZINE [Suspect]
     Active Substance: CYCLIZINE
     Dosage: UNK, Q6H
  80. CYCLIZINE [Suspect]
     Active Substance: CYCLIZINE
     Dosage: UNK, TIME INTERVAL
  81. CYCLIZINE [Suspect]
     Active Substance: CYCLIZINE
     Dosage: 4 MILLIGRAM, QD
  82. CYCLIZINE [Suspect]
     Active Substance: CYCLIZINE
     Dosage: 1 DOSAGE FORM, QD
  83. CYCLIZINE [Suspect]
     Active Substance: CYCLIZINE
     Dosage: UNK
  84. CYCLIZINE [Suspect]
     Active Substance: CYCLIZINE
     Dosage: 0.25, QD
  85. DEXAMETHASONE [Suspect]
     Active Substance: DEXAMETHASONE
     Indication: Dysphagia
     Dosage: 1 MILLIGRAM, QD/26-AUG-2020
  86. DEXAMETHASONE [Suspect]
     Active Substance: DEXAMETHASONE
     Dosage: UNK, QD/26-AUG-2020
  87. DEXAMETHASONE [Suspect]
     Active Substance: DEXAMETHASONE
     Dosage: UNK, QD,UNK, ONCE PER DAY/26-AUG-2020
  88. ATEZOLIZUMAB [Suspect]
     Active Substance: ATEZOLIZUMAB
     Indication: Non-small cell lung cancer
     Dosage: 1200 MG, EVERY 3 WEEKS; MOST RECENT DOSE PRIOR TO ADVERSE EVENT ONSET ON 19/AUG//29-JUL-2020
     Route: 041
  89. ATEZOLIZUMAB [Suspect]
     Active Substance: ATEZOLIZUMAB
     Indication: Small cell lung cancer
     Dosage: UNK
  90. ATEZOLIZUMAB [Suspect]
     Active Substance: ATEZOLIZUMAB
     Indication: Transitional cell carcinoma
     Dosage: 1200 MILLIGRAM, Q3W (TIW)/19-AUG-2020
     Route: 041
  91. ATEZOLIZUMAB [Suspect]
     Active Substance: ATEZOLIZUMAB
     Indication: Small cell lung cancer extensive stage
     Dosage: UNK
  92. ATEZOLIZUMAB [Suspect]
     Active Substance: ATEZOLIZUMAB
     Dosage: UNK
  93. ATEZOLIZUMAB [Suspect]
     Active Substance: ATEZOLIZUMAB
     Dosage: 1200 MILLIGRAM, QW/29-JUL-2020
     Route: 041
  94. ATEZOLIZUMAB [Suspect]
     Active Substance: ATEZOLIZUMAB
     Dosage: (MOST RECENT DOSE OF ATEZOLIZUMAB PRIOR TO ADVERSE EVENT (NAUSEA) ONSET ON 19/AUG/2020)
     Route: 041
  95. BENZYDAMINE [Suspect]
     Active Substance: BENZYDAMINE
     Indication: Prophylaxis
     Dosage: 19-AUG-2020
  96. MORPHINE SULFATE [Suspect]
     Active Substance: MORPHINE SULFATE
     Indication: Pain
     Dosage: 1 MILLIGRAM, QD/27-JUL-2020
  97. MORPHINE SULFATE [Suspect]
     Active Substance: MORPHINE SULFATE
     Indication: Prophylaxis
     Dosage: 25-AUG-2020
  98. MORPHINE SULFATE [Suspect]
     Active Substance: MORPHINE SULFATE
     Dosage: UNK, ONCE PER DAY/31-JUL-2020
  99. MORPHINE SULFATE [Suspect]
     Active Substance: MORPHINE SULFATE
     Dosage: UNK, ONCE PER DAY/27-JUL-2020
  100. MORPHINE SULFATE [Suspect]
     Active Substance: MORPHINE SULFATE
     Dosage: UNK, ONCE PER DAY/27-JUL-2020
  101. ACETAMINOPHEN\CODEINE PHOSPHATE [Suspect]
     Active Substance: ACETAMINOPHEN\CODEINE PHOSPHATE
     Indication: Headache
     Dosage: 0.5 MILLIGRAM, QD
  102. ACETAMINOPHEN\CODEINE PHOSPHATE [Suspect]
     Active Substance: ACETAMINOPHEN\CODEINE PHOSPHATE
     Indication: Pain
     Dosage: UNK, BID
  103. ACETAMINOPHEN\CODEINE PHOSPHATE [Suspect]
     Active Substance: ACETAMINOPHEN\CODEINE PHOSPHATE
     Dosage: UNK, ONCE PER DAY
  104. ACETAMINOPHEN\CODEINE PHOSPHATE [Suspect]
     Active Substance: ACETAMINOPHEN\CODEINE PHOSPHATE
     Dosage: UNK, BID
  105. ACETAMINOPHEN\CODEINE PHOSPHATE [Suspect]
     Active Substance: ACETAMINOPHEN\CODEINE PHOSPHATE
     Dosage: UNK, BID
  106. SPIRIVA [Suspect]
     Active Substance: TIOTROPIUM BROMIDE MONOHYDRATE
     Indication: Chronic obstructive pulmonary disease
     Dosage: UNK, QD
  107. SPIRIVA [Suspect]
     Active Substance: TIOTROPIUM BROMIDE MONOHYDRATE
     Dosage: UNK, ONCE PER DAY
  108. SPIRIVA [Suspect]
     Active Substance: TIOTROPIUM BROMIDE MONOHYDRATE
     Dosage: 1 DOSAGE FORM, QD
  109. MAGNESIUM [Concomitant]
     Active Substance: MAGNESIUM
     Indication: Product used for unknown indication
     Dosage: 19-AUG-2020
     Dates: end: 20200819
  110. METOCLOPRAMIDE [Concomitant]
     Active Substance: METOCLOPRAMIDE
     Indication: Vomiting
     Dosage: UNK, ONCE PER DAY
  111. METOCLOPRAMIDE [Concomitant]
     Active Substance: METOCLOPRAMIDE
     Dosage: UNK
  112. POTASSIUM BICARBONATE\POTASSIUM CHLORIDE [Concomitant]
     Active Substance: POTASSIUM BICARBONATE\POTASSIUM CHLORIDE
     Indication: Prophylaxis
     Dosage: UNK, 5QD/28-AUG-2020
     Dates: end: 20200901
  113. POTASSIUM BICARBONATE\POTASSIUM CHLORIDE [Concomitant]
     Active Substance: POTASSIUM BICARBONATE\POTASSIUM CHLORIDE
     Dosage: UNK, 2 TIMES PER DAY/19-AUG-2020
  114. PHOSPHORIC ACID [Concomitant]
     Active Substance: PHOSPHORIC ACID
     Indication: Product used for unknown indication
     Dosage: UNK, ONCE PER DAY/25-AUG-2020
     Dates: end: 20200825
  115. PHOSPHORIC ACID [Concomitant]
     Active Substance: PHOSPHORIC ACID
     Dosage: UNK, QD/25-AUG-2020
     Dates: end: 20200825
  116. PHOSPHORIC ACID [Concomitant]
     Active Substance: PHOSPHORIC ACID
     Dosage: UNK
     Dates: end: 20200825
  117. PHOSPHORIC ACID [Concomitant]
     Active Substance: PHOSPHORIC ACID
     Dosage: UNK
  118. ONDANSETRON [Concomitant]
     Active Substance: ONDANSETRON
     Indication: Product used for unknown indication
     Dosage: 8 MILLIGRAM/29-JUL-2020
     Dates: end: 20200729
  119. ATEZOLIZUMAB [Concomitant]
     Active Substance: ATEZOLIZUMAB
     Dosage: UNK
     Route: 041

REACTIONS (24)
  - Balance disorder [Fatal]
  - Product use in unapproved indication [Fatal]
  - Decreased appetite [Fatal]
  - Asthenia [Unknown]
  - Skin candida [Not Recovered/Not Resolved]
  - Mucosal inflammation [Not Recovered/Not Resolved]
  - Productive cough [Not Recovered/Not Resolved]
  - Dyspnoea [Not Recovered/Not Resolved]
  - Headache [Not Recovered/Not Resolved]
  - Hypokalaemia [Recovered/Resolved]
  - Neutropenic sepsis [Not Recovered/Not Resolved]
  - Dehydration [Not Recovered/Not Resolved]
  - Dysphagia [Not Recovered/Not Resolved]
  - Nausea [Recovered/Resolved]
  - Mouth ulceration [Recovered/Resolved]
  - Constipation [Not Recovered/Not Resolved]
  - Hypomagnesaemia [Recovered/Resolved]
  - Nervous system disorder [Not Recovered/Not Resolved]
  - Depression [Not Recovered/Not Resolved]
  - Neutrophil count decreased [Recovered/Resolved]
  - Vomiting [Not Recovered/Not Resolved]
  - Gait disturbance [Unknown]
  - Diarrhoea [Recovered/Resolved]
  - Anaemia [Recovered/Resolved]

NARRATIVE: CASE EVENT DATE: 20200730
